FAERS Safety Report 9426921 (Version 1)
Quarter: 2013Q3

REPORT INFORMATION
  Report Type: Spontaneous
  Country: KR (occurrence: KR)
  Receive Date: 20130730
  Receipt Date: 20130730
  Transmission Date: 20140515
  Serious: Yes (Other)
  Sender: FDA-Public Use
  Company Number: KR-ASTELLAS-2013JP007940

PATIENT
  Sex: Female

DRUGS (1)
  1. VESICARE [Suspect]
     Route: 048

REACTIONS (1)
  - Pyelonephritis acute [Unknown]
